FAERS Safety Report 6028790-5 (Version None)
Quarter: 2009Q1

REPORT INFORMATION
  Report Type: 
  Country: None (occurrence: None)
  Receive Date: 20090106
  Receipt Date: 20081230
  Transmission Date: 20090719
  Serious: Yes (Other)
  Sender: FDA-Public Use
  Company Number: B0552203A

PATIENT
  Age: 56 Year
  Sex: Male
  Weight: 94 kg

DRUGS (5)
  1. AVANDIA [Suspect]
     Route: 048
     Dates: start: 20080424, end: 20081001
  2. ASPIRIN [Concomitant]
     Route: 048
     Dates: start: 20060101
  3. METFORMIN HCL [Concomitant]
     Dosage: 2000MG PER DAY
     Route: 048
     Dates: start: 20060101
  4. RAMIPRIL [Concomitant]
     Indication: HYPERTENSION
     Route: 048
     Dates: start: 20070201
  5. ATORVASTATIN CALCIUM [Concomitant]
     Route: 048
     Dates: start: 20070401

REACTIONS (2)
  - HYPERKERATOSIS [None]
  - LICHEN PLANUS [None]
